FAERS Safety Report 5447307-7 (Version None)
Quarter: 2007Q3

REPORT INFORMATION
  Report Type: 
  Country: None (occurrence: None)
  Receive Date: 20070910
  Receipt Date: 20070829
  Transmission Date: 20080115
  Serious: Yes (Hospitalization, Other)
  Sender: FDA-Public Use
  Company Number: HQWYE319123MAY07

PATIENT
  Sex: Male

DRUGS (5)
  1. AMIODARONE HCL [Suspect]
     Indication: ATRIAL FLUTTER
     Route: 048
     Dates: start: 20061220, end: 20061226
  2. AMIODARONE HCL [Suspect]
     Indication: ATRIAL FIBRILLATION
     Dates: start: 20061227, end: 20070307
  3. AMIODARONE HCL [Suspect]
     Route: 048
     Dates: start: 20070310, end: 20070316
  4. AMIODARONE HCL [Suspect]
     Route: 048
     Dates: start: 20070317, end: 20070420
  5. VASOLAN [Concomitant]
     Indication: ATRIAL FLUTTER
     Route: 048
     Dates: start: 20070328, end: 20070514

REACTIONS (7)
  - DISSEMINATED INTRAVASCULAR COAGULATION [None]
  - DRUG INEFFECTIVE [None]
  - PLEURAL EFFUSION [None]
  - PNEUMONIA [None]
  - PULMONARY OEDEMA [None]
  - RESPIRATORY FAILURE [None]
  - VENTRICULAR FIBRILLATION [None]
